FAERS Safety Report 18473928 (Version 2)
Quarter: 2020Q4

REPORT INFORMATION
  Report Type: Spontaneous
  Country: IT (occurrence: IT)
  Receive Date: 20201106
  Receipt Date: 20201119
  Transmission Date: 20210114
  Serious: Yes (Other)
  Sender: FDA-Public Use
  Company Number: IT-009507513-2010ITA011653

PATIENT
  Age: 66 Year
  Sex: Male

DRUGS (2)
  1. CEFTOLOZANE SULFATE  (+) TAZOBACTAM SODIUM [Suspect]
     Active Substance: CEFTOLOZANE SULFATE\TAZOBACTAM SODIUM
     Indication: OSTEOMYELITIS
     Dosage: 3 GRAM, THREE TIMES DAILY
     Dates: start: 2018, end: 2018
  2. AMIKACIN. [Concomitant]
     Active Substance: AMIKACIN
     Indication: OSTEOMYELITIS
     Dosage: 15 MILLIGRAM/KILOGRAM, ONCE DAILY
     Dates: start: 2018

REACTIONS (2)
  - Pathogen resistance [Unknown]
  - Product use in unapproved indication [Unknown]

NARRATIVE: CASE EVENT DATE: 2018
